FAERS Safety Report 9167532 (Version 2)
Quarter: 2013Q4

REPORT INFORMATION
  Report Type: Spontaneous
  Country: GB (occurrence: GB)
  Receive Date: 20130318
  Receipt Date: 20131030
  Transmission Date: 20140711
  Serious: Yes (Disabling)
  Sender: FDA-Public Use
  Company Number: GB-ACCORD-016872

PATIENT
  Age: 25 Year
  Sex: Female
  Weight: 98 kg

DRUGS (9)
  1. CLARITHROMYCIN [Concomitant]
     Dates: start: 20130122, end: 20130129
  2. MONTELUKAST [Suspect]
     Indication: PRODUCT USED FOR UNKNOWN INDICATION
     Dates: start: 20121129, end: 20130221
  3. FOLIC ACID [Concomitant]
     Dates: start: 20130107
  4. FERROUS SULPHATE [Concomitant]
     Dates: start: 20130107
  5. SERETIDE [Concomitant]
     Dates: start: 20121031, end: 20130219
  6. QUETIAPINE [Concomitant]
     Dates: start: 20121129, end: 20130114
  7. MIRTAZAPINE [Concomitant]
     Dates: start: 20121129
  8. OMEPRAZOLE [Concomitant]
     Dates: start: 20121129
  9. SALBUTAMOL [Concomitant]
     Dates: start: 20121031, end: 20130219

REACTIONS (1)
  - Pulmonary fibrosis [Recovering/Resolving]
